FAERS Safety Report 9419226 (Version 1)
Quarter: 2013Q3

REPORT INFORMATION
  Report Type: Spontaneous
  Country: US (occurrence: None)
  Receive Date: 20130722
  Receipt Date: 20130722
  Transmission Date: 20140515
  Serious: Yes (Hospitalization)
  Sender: FDA-Public Use
  Company Number: None

PATIENT
  Age: 45 Year
  Sex: Female
  Weight: 51.71 kg

DRUGS (1)
  1. VINORELBINE [Suspect]
     Indication: BREAST CANCER METASTATIC
     Dates: start: 20130618

REACTIONS (5)
  - Cough [None]
  - Hypersensitivity [None]
  - Anxiety [None]
  - Hypoxia [None]
  - No therapeutic response [None]
